FAERS Safety Report 4392710-X (Version None)
Quarter: 2004Q3

REPORT INFORMATION
  Report Type: 
  Country: None (occurrence: None)
  Receive Date: 20040702
  Receipt Date: 20040618
  Transmission Date: 20050211
  Serious: Yes (Other)
  Sender: FDA-Public Use
  Company Number: D01200402241

PATIENT
  Age: 47 Year
  Sex: Male
  Weight: 106 kg

DRUGS (9)
  1. ENOXAPARIN SODIUM [Suspect]
     Indication: MYOCARDIAL INFARCTION
     Dosage: ...MG/KG BID- SUBCUTANEOUS
     Route: 058
     Dates: start: 20031117, end: 20031123
  2. ASPIRIN [Concomitant]
  3. CLOPIDOGREL [Concomitant]
  4. HEPARIN [Concomitant]
  5. NITRATES [Concomitant]
  6. GPIIB/IIIA [Concomitant]
  7. BETABLOCKERS [Concomitant]
  8. ACE [Concomitant]
  9. STATINS [Concomitant]

REACTIONS (2)
  - CARDIAC PROCEDURE COMPLICATION [None]
  - CATHETER RELATED COMPLICATION [None]
